FAERS Safety Report 13654372 (Version 3)
Quarter: 2018Q3

REPORT INFORMATION
  Report Type: Report from Study
  Country: US (occurrence: US)
  Receive Date: 20170615
  Receipt Date: 20180821
  Transmission Date: 20181010
  Serious: Yes (Hospitalization, Other)
  Sender: FDA-Public Use
  Company Number: US-AMGEN-USASL2017087554

PATIENT
  Age: 63 Year
  Sex: Female

DRUGS (2)
  1. REPATHA [Suspect]
     Active Substance: EVOLOCUMAB
     Indication: BLOOD CHOLESTEROL INCREASED
     Dosage: 140 MG, Q2WK
     Route: 065
     Dates: start: 201606, end: 201606
  2. REPATHA [Suspect]
     Active Substance: EVOLOCUMAB
     Indication: HYPERCHOLESTEROLAEMIA
     Dosage: 140 MG, Q2WK
     Route: 065
     Dates: start: 2017

REACTIONS (18)
  - Dehydration [Unknown]
  - Ill-defined disorder [Unknown]
  - Urinary tract infection [Unknown]
  - Nausea [Unknown]
  - Cytomegalovirus infection [Unknown]
  - Feeling abnormal [Unknown]
  - Nasal congestion [Recovered/Resolved]
  - Tremor [Unknown]
  - Hypersensitivity [Unknown]
  - Gait disturbance [Unknown]
  - Sinus disorder [Unknown]
  - Arthropathy [Unknown]
  - Immune system disorder [Unknown]
  - Muscle disorder [Unknown]
  - Decreased appetite [Unknown]
  - Pain in extremity [Unknown]
  - Diarrhoea [Unknown]
  - Epistaxis [Unknown]

NARRATIVE: CASE EVENT DATE: 201606
